FAERS Safety Report 21299761 (Version 2)
Quarter: 2022Q4

REPORT INFORMATION
  Report Type: Spontaneous
  Country: US (occurrence: US)
  Receive Date: 20220906
  Receipt Date: 20221014
  Transmission Date: 20230113
  Serious: Yes (Other)
  Sender: FDA-Public Use
  Company Number: US-Covis Pharma GmbH-2022COV02516

PATIENT
  Age: 58 Year

DRUGS (1)
  1. OMNARIS [Suspect]
     Active Substance: CICLESONIDE
     Indication: Product used for unknown indication
     Route: 045

REACTIONS (3)
  - Angioedema [Unknown]
  - Feeling abnormal [Unknown]
  - Eye contusion [Unknown]

NARRATIVE: CASE EVENT DATE: 20220622
